FAERS Safety Report 4722669-4 (Version None)
Quarter: 2005Q3

REPORT INFORMATION
  Report Type: 
  Country: None (occurrence: None)
  Receive Date: 20050720
  Receipt Date: 20050707
  Transmission Date: 20060218
  Serious: Yes (Hospitalization, Other)
  Sender: FDA-Public Use
  Company Number: 2005099023

PATIENT
  Age: 32 Year
  Sex: Male

DRUGS (2)
  1. LOPID [Suspect]
     Indication: BLOOD TRIGLYCERIDES ABNORMAL
  2. QUINOLONE ANTIBACTERIALS (QUINOLONE ANTIBACTERIALS) [Suspect]
     Indication: ILL-DEFINED DISORDER

REACTIONS (2)
  - BLOOD CREATINE PHOSPHOKINASE INCREASED [None]
  - DERMATOMYOSITIS [None]
